FAERS Safety Report 4548279-X (Version None)
Quarter: 2004Q4

REPORT INFORMATION
  Report Type: 
  Country: None (occurrence: None)
  Receive Date: 20041227
  Receipt Date: 20041011
  Transmission Date: 20050328
  Serious: No
  Sender: FDA-Public Use
  Company Number: 04P-163-0276840-00

PATIENT
  Age: 49 Year
  Sex: Female
  Weight: 71.6683 kg

DRUGS (14)
  1. HUMIRA [Suspect]
     Indication: RHEUMATOID ARTHRITIS
     Dosage: SEE IMAGE
     Route: 058
     Dates: start: 20040601, end: 20040901
  2. HUMIRA [Suspect]
     Indication: RHEUMATOID ARTHRITIS
     Dosage: SEE IMAGE
     Route: 058
     Dates: start: 20040901
  3. METHOTREXATE [Concomitant]
  4. MELOXICAM [Concomitant]
  5. DILTIAZEM HYDROCHLORIDE [Concomitant]
  6. PIRBUTEROL ACETATE [Concomitant]
  7. IPATROPIUM BROMIDE [Concomitant]
  8. TRIAMCINOLONE ACETONIDE [Concomitant]
  9. ESTRADIOL [Concomitant]
  10. LEVOTHYROXINE SODIUM [Concomitant]
  11. VENLAFAXINE HCL [Concomitant]
  12. VICODIN [Concomitant]
  13. FOLIC ACID [Concomitant]
  14. LANSOPRAZOLE [Concomitant]

REACTIONS (3)
  - CELLULITIS [None]
  - DRUG INEFFECTIVE [None]
  - OEDEMA PERIPHERAL [None]
